FAERS Safety Report 5402287-5 (Version None)
Quarter: 2007Q3

REPORT INFORMATION
  Report Type: 
  Country: None (occurrence: None)
  Receive Date: 20070730
  Receipt Date: 20070717
  Transmission Date: 20080115
  Serious: Yes (Hospitalization, Disabling)
  Sender: FDA-Public Use
  Company Number: 235943K07USA

PATIENT
  Age: 40 Year
  Sex: Female

DRUGS (6)
  1. REBIF [Suspect]
     Indication: MULTIPLE SCLEROSIS
     Dosage: 22 MCG, 3 IN 1 WEEKS, SUBCUTANEOUS
     Route: 058
     Dates: start: 20060919
  2. BACLOFEN [Concomitant]
  3. HYDROCODONE (HYDROCODONE) [Concomitant]
  4. LYRICA [Concomitant]
  5. FLEXERIL [Concomitant]
  6. UNSPECIFIED ANTIBIOTIC (ANTIOBTICS) [Concomitant]

REACTIONS (9)
  - CATHETER RELATED COMPLICATION [None]
  - CONDITION AGGRAVATED [None]
  - DYSURIA [None]
  - MONOPLEGIA [None]
  - MUSCLE SPASMS [None]
  - MYELITIS TRANSVERSE [None]
  - PAIN [None]
  - PARAESTHESIA [None]
  - VOMITING [None]
